FAERS Safety Report 8030436-1 (Version None)
Quarter: 2012Q1

REPORT INFORMATION
  Report Type: 
  Country: None (occurrence: None)
  Receive Date: 20120109
  Receipt Date: 20120109
  Transmission Date: 20120608
  Serious: Yes (Hospitalization)
  Sender: FDA-Public Use
  Company Number: None

PATIENT
  Age: 28 Year
  Sex: Female
  Weight: 71.667 kg

DRUGS (1)
  1. DOXYCYCLINE [Suspect]
     Indication: LYME DISEASE
     Dosage: 100MG
     Route: 048
     Dates: start: 20120108, end: 20120108

REACTIONS (5)
  - CHEST PAIN [None]
  - UNEVALUABLE EVENT [None]
  - TONGUE ULCERATION [None]
  - THROAT IRRITATION [None]
  - DYSPNOEA [None]
